FAERS Safety Report 17244110 (Version 1)
Quarter: 2020Q1

REPORT INFORMATION
  Report Type: Spontaneous
  Country: US (occurrence: US)
  Receive Date: 20200107
  Receipt Date: 20200107
  Transmission Date: 20200409
  Serious: No
  Sender: FDA-Public Use
  Company Number: US-AMNEAL PHARMACEUTICALS-2019-AMRX-01776

PATIENT
  Age: 8 Year
  Sex: Male
  Weight: 10 kg

DRUGS (2)
  1. GUANFACINE. [Suspect]
     Active Substance: GUANFACINE
     Indication: ATTENTION DEFICIT/HYPERACTIVITY DISORDER
  2. GUANFACINE. [Suspect]
     Active Substance: GUANFACINE
     Indication: IMPULSE-CONTROL DISORDER
     Dosage: 1 MILLIGRAM
     Route: 065
     Dates: start: 201812

REACTIONS (1)
  - Drug ineffective [Unknown]
